FAERS Safety Report 8177480-1 (Version None)
Quarter: 2012Q1

REPORT INFORMATION
  Report Type: 
  Country: None (occurrence: None)
  Receive Date: 20120301
  Receipt Date: 20120217
  Transmission Date: 20120608
  Serious: No
  Sender: FDA-Public Use
  Company Number: US-ACTELION-A-NJ2012-61549

PATIENT

DRUGS (1)
  1. TRACLEER [Suspect]
     Route: 015

REACTIONS (1)
  - LIVE BIRTH [None]
